FAERS Safety Report 10713331 (Version 1)
Quarter: 2015Q1

REPORT INFORMATION
  Report Type: Report from Study
  Country: KR (occurrence: KR)
  Receive Date: 20150115
  Receipt Date: 20150115
  Transmission Date: 20150721
  Serious: Yes (Hospitalization)
  Sender: FDA-Public Use
  Company Number: KR-SA-2015SA004182

PATIENT
  Age: 56 Year
  Sex: Female
  Weight: 55 kg

DRUGS (2)
  1. NOVORAPID [Suspect]
     Active Substance: INSULIN ASPART
     Indication: DIABETES MELLITUS
     Dosage: DOSE: 8-8-10 UNITS
     Route: 058
     Dates: start: 20141011
  2. LANTUS [Suspect]
     Active Substance: INSULIN GLARGINE
     Indication: DIABETES MELLITUS
     Dosage: DOSE:24 UNIT(S)
     Route: 058
     Dates: start: 20141011

REACTIONS (3)
  - Blood glucose increased [Unknown]
  - Drug administration error [Unknown]
  - Ligament operation [Unknown]

NARRATIVE: CASE EVENT DATE: 20150109
